FAERS Safety Report 12906789 (Version 2)
Quarter: 2016Q4

REPORT INFORMATION
  Report Type: Report from Study
  Country: US (occurrence: US)
  Receive Date: 20161103
  Receipt Date: 20161221
  Transmission Date: 20170207
  Serious: Yes (Hospitalization)
  Sender: FDA-Public Use
  Company Number: US-JNJFOC-20161102081

PATIENT
  Sex: Female

DRUGS (13)
  1. IMBRUVICA [Suspect]
     Active Substance: IBRUTINIB
     Indication: CHRONIC LYMPHOCYTIC LEUKAEMIA
     Route: 048
     Dates: start: 20151028
  2. GABAPENTIN. [Concomitant]
     Active Substance: GABAPENTIN
  3. CLONAZEPAM. [Concomitant]
     Active Substance: CLONAZEPAM
  4. LINACLOTIDE [Concomitant]
     Active Substance: LINACLOTIDE
  5. IRON [Concomitant]
     Active Substance: IRON
  6. PREDNISONE. [Concomitant]
     Active Substance: PREDNISONE
  7. RESTASIS [Concomitant]
     Active Substance: CYCLOSPORINE
  8. IMBRUVICA [Suspect]
     Active Substance: IBRUTINIB
     Indication: CHRONIC LYMPHOCYTIC LEUKAEMIA
     Route: 048
     Dates: start: 20151126
  9. DULOXETINE. [Concomitant]
     Active Substance: DULOXETINE
  10. ESCITALOPRAM [Concomitant]
     Active Substance: ESCITALOPRAM OXALATE
  11. HYDROMORPHONE [Concomitant]
     Active Substance: HYDROMORPHONE
  12. DIAZEPAM. [Concomitant]
     Active Substance: DIAZEPAM
  13. ESOMEPRAZOLE [Concomitant]
     Active Substance: ESOMEPRAZOLE

REACTIONS (2)
  - Abdominal discomfort [Unknown]
  - Gastrointestinal disorder [Unknown]
